FAERS Safety Report 13153237 (Version 2)
Quarter: 2017Q3

REPORT INFORMATION
  Report Type: Spontaneous
  Country: JP (occurrence: JP)
  Receive Date: 20170126
  Receipt Date: 20170719
  Transmission Date: 20171127
  Serious: Yes (Disabling)
  Sender: FDA-Public Use
  Company Number: JP-AMGEN-JPNSP2017012142

PATIENT
  Age: 78 Year
  Sex: Male
  Weight: 55 kg

DRUGS (7)
  1. ZOMETA [Suspect]
     Active Substance: ZOLEDRONIC ACID
     Indication: METASTASES TO BONE
     Dosage: 4 MG, 49 TIMES
     Route: 042
     Dates: start: 20100405, end: 20140430
  2. ZOMETA [Suspect]
     Active Substance: ZOLEDRONIC ACID
     Indication: METASTASES TO PELVIS
  3. RANMARK [Suspect]
     Active Substance: DENOSUMAB
     Indication: METASTASES TO BONE
     Dosage: 120 MG, Q4WK
     Route: 058
     Dates: start: 20140528
  4. RANMARK [Suspect]
     Active Substance: DENOSUMAB
     Indication: METASTASES TO PELVIS
  5. LEUPLIN [Concomitant]
     Active Substance: LEUPROLIDE ACETATE
     Indication: PROSTATE CANCER
     Dosage: 3.75 MG, UNK
     Route: 058
     Dates: start: 20100405
  6. CASODEX [Concomitant]
     Active Substance: BICALUTAMIDE
     Indication: PROSTATE CANCER
     Dosage: 80 MG, UNK
     Route: 048
     Dates: start: 20100405
  7. UFT [Concomitant]
     Active Substance: TEGAFUR\URACIL
     Indication: PROSTATE CANCER
     Dosage: 300MG/100MG/TIMES
     Route: 048
     Dates: start: 20100405, end: 20131231

REACTIONS (1)
  - Osteonecrosis of jaw [Not Recovered/Not Resolved]

NARRATIVE: CASE EVENT DATE: 20141107
